FAERS Safety Report 24859835 (Version 2)
Quarter: 2025Q3

REPORT INFORMATION
  Report Type: Report from Study
  Country: US (occurrence: US)
  Receive Date: 20250119
  Receipt Date: 20250710
  Transmission Date: 20251020
  Serious: Yes (Hospitalization)
  Sender: ABBVIE
  Company Number: US-ABBVIE-6092149

PATIENT
  Age: 55 Year
  Sex: Female

DRUGS (1)
  1. VYALEV [Suspect]
     Active Substance: FOSCARBIDOPA\FOSLEVODOPA
     Indication: Parkinson^s disease
     Route: 058
     Dates: start: 20241211, end: 20241220

REACTIONS (2)
  - Urinary tract infection [Unknown]
  - Multimorbidity [Recovering/Resolving]

NARRATIVE: CASE EVENT DATE: 20241221
